FAERS Safety Report 16959659 (Version 4)
Quarter: 2020Q1

REPORT INFORMATION
  Report Type: Spontaneous
  Country: ES (occurrence: ES)
  Receive Date: 20191025
  Receipt Date: 20200211
  Transmission Date: 20200409
  Serious: Yes (Hospitalization)
  Sender: FDA-Public Use
  Company Number: ES-SUN PHARMACEUTICAL INDUSTRIES LTD-2019RR-225128

PATIENT
  Age: 85 Year
  Sex: Female

DRUGS (9)
  1. DONEPEZIL. [Suspect]
     Active Substance: DONEPEZIL
     Indication: DEMENTIA ALZHEIMER^S TYPE
     Dosage: 5 MILLIGRAMS, DAILY
     Route: 048
     Dates: start: 20190123, end: 20190603
  2. AMLODIPINO (2503A) [Suspect]
     Active Substance: AMLODIPINE BESYLATE
     Indication: HYPERTENSION
     Dosage: 5 MILLIGRAM, DAILY
     Route: 048
     Dates: start: 20190123, end: 20190604
  3. ATORVASTATINA (7400A) [Concomitant]
     Active Substance: ATORVASTATIN
     Indication: DYSLIPIDAEMIA
     Dosage: 10 MILLIGRAM, DAILY
     Route: 048
     Dates: start: 20190123
  4. BISOPROLOL (2328A) [Suspect]
     Active Substance: BISOPROLOL
     Indication: HYPERTENSION
     Dosage: 1.25 MILLIGRAM, DAILY
     Route: 048
     Dates: start: 20190123, end: 20190603
  5. LYRICA [Concomitant]
     Active Substance: PREGABALIN
     Indication: PRODUCT USED FOR UNKNOWN INDICATION
     Dosage: 150 MG, Q24H
     Route: 048
     Dates: start: 20190123
  6. HIDROFEROL 0,266 MG CAPSULAS BLANDAS , 5 CAPSULAS (BLISTER PVC/PVDC [Concomitant]
     Indication: PRODUCT USED FOR UNKNOWN INDICATION
     Dosage: 0.26 MILLIGRAM, EVERY 15 DAYS
     Route: 048
     Dates: start: 20190123
  7. RANITIDINA 150 MG COMPRIMIDO [Concomitant]
     Indication: PRODUCT USED FOR UNKNOWN INDICATION
     Dosage: 150 MG, Q24H
     Route: 048
     Dates: start: 20190123
  8. DEPRAX 100 MG COMPRIMIDOS RECUBIERTOS CON PELICULA EFG , 30 COMPRIM [Concomitant]
     Indication: PRODUCT USED FOR UNKNOWN INDICATION
     Dosage: 50 MG, Q24H
     Route: 048
     Dates: start: 20190123
  9. APROVEL, 150, MG COMPRIMIDOS RECUBIERTOS CON PELICULA [Concomitant]
     Indication: PRODUCT USED FOR UNKNOWN INDICATION
     Dosage: 150 MG, Q24H
     Route: 048
     Dates: start: 20190123, end: 20190607

REACTIONS (2)
  - Syncope [Recovered/Resolved]
  - Sinus bradycardia [Recovered/Resolved]

NARRATIVE: CASE EVENT DATE: 20190603
